FAERS Safety Report 9901558 (Version 2)
Quarter: 2014Q1

REPORT INFORMATION
  Report Type: Spontaneous
  Country: US (occurrence: US)
  Receive Date: 20140217
  Receipt Date: 20140217
  Transmission Date: 20141002
  Serious: No
  Sender: FDA-Public Use
  Company Number: US-GILEAD-2011-0042233

PATIENT
  Age: 37 Year
  Sex: Female

DRUGS (5)
  1. LETAIRIS [Suspect]
     Indication: PULMONARY HYPERTENSION
     Route: 048
     Dates: start: 20110603
  2. LETAIRIS [Suspect]
     Indication: THYROID CANCER METASTATIC
  3. LETAIRIS [Suspect]
     Indication: PULMONARY MASS
  4. LETAIRIS [Suspect]
     Indication: CARDIAC FAILURE HIGH OUTPUT
  5. LETAIRIS [Suspect]
     Indication: THYROID HORMONE REPLACEMENT THERAPY

REACTIONS (1)
  - Headache [Not Recovered/Not Resolved]
